FAERS Safety Report 5880609-9 (Version None)
Quarter: 2008Q3

REPORT INFORMATION
  Report Type: 
  Country: None (occurrence: None)
  Receive Date: 20080912
  Receipt Date: 20080605
  Transmission Date: 20090109
  Serious: No
  Sender: FDA-Public Use
  Company Number: US-ABBOTT-08P-163-0455219-00

PATIENT
  Sex: Female
  Weight: 79.45 kg

DRUGS (10)
  1. HUMIRA [Suspect]
     Indication: CROHN'S DISEASE
     Route: 058
     Dates: start: 20080401
  2. HUMIRA [Suspect]
     Indication: FISTULA
  3. B12 SHOT [Concomitant]
     Indication: DRUG USE FOR UNKNOWN INDICATION
     Dosage: UNIT: 1ML - 1000 MG MULTI DOSE BOTTLE
     Route: 050
  4. WELLBUTRIN [Concomitant]
     Indication: DEPRESSION
     Route: 048
  5. ESCITALOPRAM OXALATE [Concomitant]
     Indication: DEPRESSION
     Route: 048
  6. TRAZODONE HCL [Concomitant]
     Indication: DEPRESSION
     Route: 048
  7. NADOLOL [Concomitant]
     Indication: MIGRAINE
     Route: 048
  8. PANTOPRAZOLE [Concomitant]
     Indication: PROPHYLAXIS AGAINST GASTROINTESTINAL ULCER
     Route: 048
  9. SUMATRIPTAN SUCCINATE [Concomitant]
     Indication: MIGRAINE
     Route: 050
  10. WARFARIN SODIUM [Concomitant]
     Indication: COAGULATION TIME
     Dosage: SLIDING SCALE
     Route: 048

REACTIONS (5)
  - INFLUENZA LIKE ILLNESS [None]
  - MAJOR DEPRESSION [None]
  - NAUSEA [None]
  - PAIN [None]
  - VOMITING [None]
